FAERS Safety Report 24629970 (Version 1)
Quarter: 2024Q4

REPORT INFORMATION
  Report Type: Other
  Country: FR (occurrence: FR)
  Receive Date: 20241118
  Receipt Date: 20241118
  Transmission Date: 20250115
  Serious: Yes (Death, Other)
  Sender: MACLEODS
  Company Number: FR-MACLEODS PHARMA-MAC2024050295

PATIENT

DRUGS (5)
  1. TENOFOVIR DISOPROXIL [Suspect]
     Active Substance: TENOFOVIR DISOPROXIL
     Indication: HIV infection
     Dosage: 2 COURSE OF TABS/CAP, EXPOSURE DURING SECOND TRIMESTER
     Route: 065
     Dates: start: 20231110, end: 20240202
  2. EMTRICITABINE [Suspect]
     Active Substance: EMTRICITABINE
     Indication: HIV infection
     Dosage: 1 COURSE OF TABS/CAP, EXPOSURE DURING SECOND TRIMESTER
     Route: 065
     Dates: start: 20231110, end: 20240202
  3. ENTECAVIR [Suspect]
     Active Substance: ENTECAVIR
     Indication: HIV infection
     Dosage: 1 COURSE OF TABS/CAP
     Route: 065
     Dates: start: 20231110, end: 20240202
  4. TIVICAY [Suspect]
     Active Substance: DOLUTEGRAVIR SODIUM
     Indication: HIV infection
     Dosage: 1 COURSE OF TABS/CAP, EXPOSURE DURING SECOND TRIMESTER
     Route: 065
     Dates: start: 20231110, end: 20240202
  5. DOVATO [Suspect]
     Active Substance: DOLUTEGRAVIR SODIUM\LAMIVUDINE
     Indication: HIV infection
     Dosage: 1 COURSE OF TABS/CAP, EXPOSURE DURING THIRD TRIMESTER
     Route: 065
     Dates: start: 20240202, end: 20240419

REACTIONS (2)
  - Death [Fatal]
  - Maternal exposure during pregnancy [Unknown]
